FAERS Safety Report 5779197-7 (Version None)
Quarter: 2008Q2

REPORT INFORMATION
  Report Type: 
  Country: None (occurrence: None)
  Receive Date: 20080619
  Receipt Date: 20080609
  Transmission Date: 20081010
  Serious: Yes (Life-Threatening)
  Sender: FDA-Public Use
  Company Number: JP-ABBOTT-08P-087-0457007-00

PATIENT
  Age: 76 Year
  Sex: Male

DRUGS (7)
  1. LEUPLIN SR FOR INJECTION KIT [Suspect]
     Indication: PROSTATE CANCER STAGE IV
     Dates: start: 20061003, end: 20070417
  2. LEUPLIN SR FOR INJECTION KIT [Suspect]
  3. CANDESARTAN CILEXETIL [Concomitant]
     Indication: HYPERTENSION
     Dosage: DAILY
     Route: 048
  4. VOGLIBOSE [Concomitant]
     Indication: DIABETES MELLITUS
     Dosage: DAILY
     Route: 048
  5. BICALUTAMIDE [Concomitant]
     Indication: PROSTATE CANCER STAGE IV
     Dosage: DAILY
     Route: 048
     Dates: start: 20061003
  6. NATEGLINIDE [Concomitant]
     Indication: DIABETES MELLITUS
     Dosage: DAILY
     Route: 048
  7. ETHYL ICOSAPENTATE [Concomitant]
     Indication: HYPERLIPIDAEMIA
     Dosage: DAILY
     Route: 048

REACTIONS (2)
  - GENERAL PHYSICAL HEALTH DETERIORATION [None]
  - PHARYNGEAL CANCER STAGE UNSPECIFIED [None]
